FAERS Safety Report 24203082 (Version 3)
Quarter: 2025Q3

REPORT INFORMATION
  Report Type: Report from Study
  Country: US (occurrence: US)
  Receive Date: 20240813
  Receipt Date: 20250803
  Transmission Date: 20251020
  Serious: Yes (Death, Hospitalization, Other)
  Sender: ALEXION PHARMACEUTICALS
  Company Number: 2024A180703

PATIENT
  Age: 84 Year
  Sex: Male
  Weight: 66.213 kg

DRUGS (8)
  1. FARXIGA [Suspect]
     Active Substance: DAPAGLIFLOZIN PROPANEDIOL
  2. PANTOPRAZOLE SODIUM [Concomitant]
     Active Substance: PANTOPRAZOLE SODIUM
  3. THIAMINE [Concomitant]
     Active Substance: THIAMINE
  4. VITAMINS [Concomitant]
     Active Substance: VITAMINS
  5. TICAGRELOR [Concomitant]
     Active Substance: TICAGRELOR
  6. CHLORHEXIDINE [Concomitant]
     Active Substance: CHLORHEXIDINE
  7. VASOPRESSIN [Concomitant]
     Active Substance: VASOPRESSIN
  8. NOREPINEPHRINE [Concomitant]
     Active Substance: NOREPINEPHRINE

REACTIONS (6)
  - Death [Fatal]
  - Gastrointestinal haemorrhage [Unknown]
  - Lactic acidosis [Unknown]
  - Acute kidney injury [Unknown]
  - Haemodynamic instability [Unknown]
  - Haemoptysis [Unknown]

NARRATIVE: CASE EVENT DATE: 20240807
